FAERS Safety Report 6521567-3 (Version None)
Quarter: 2009Q4

REPORT INFORMATION
  Report Type: 
  Country: None (occurrence: None)
  Receive Date: 20091230
  Receipt Date: 20091216
  Transmission Date: 20100525
  Serious: Yes (Hospitalization)
  Sender: FDA-Public Use
  Company Number: PHHY2009AU46428

PATIENT
  Sex: Male

DRUGS (3)
  1. CLOZARIL [Suspect]
     Indication: SCHIZOPHRENIA
     Dosage: 800 MG, UNK
     Route: 048
     Dates: start: 20091026
  2. HYOSCINE [Concomitant]
     Indication: SALIVARY HYPERSECRETION
     Dosage: ONCE NOCTE
     Route: 060
  3. ATROPINE [Concomitant]
     Indication: SALIVARY HYPERSECRETION
     Dosage: TWO NOCTE
     Dates: start: 20091211

REACTIONS (1)
  - DRUG ABUSE [None]
